FAERS Safety Report 10049756 (Version 2)
Quarter: 2014Q2

REPORT INFORMATION
  Report Type: Spontaneous
  Country: CN (occurrence: CN)
  Receive Date: 20140401
  Receipt Date: 20140502
  Transmission Date: 20141212
  Serious: Yes (Other)
  Sender: FDA-Public Use
  Company Number: CN-ASTELLAS-2014JP002807

PATIENT
  Sex: Male

DRUGS (1)
  1. MYCAMINE [Suspect]
     Indication: FUNGAL INFECTION
     Route: 042
     Dates: start: 20140225, end: 20140310

REACTIONS (1)
  - Device related infection [Recovered/Resolved]
